FAERS Safety Report 21400083 (Version 2)
Quarter: 2022Q4

REPORT INFORMATION
  Report Type: Report from Study
  Country: MX (occurrence: MX)
  Receive Date: 20221002
  Receipt Date: 20221030
  Transmission Date: 20230112
  Serious: Yes (Other)
  Sender: FDA-Public Use
  Company Number: MX-NOVARTISPH-NVSC2022MX220983

PATIENT
  Sex: Female
  Weight: 67 kg

DRUGS (1)
  1. KISQALI [Suspect]
     Active Substance: RIBOCICLIB
     Indication: Breast cancer
     Dosage: UNK
     Route: 048

REACTIONS (10)
  - Breast cancer recurrent [Unknown]
  - Metastases to bone [Unknown]
  - Condition aggravated [Unknown]
  - Gastritis [Unknown]
  - Weight decreased [Unknown]
  - Decreased immune responsiveness [Unknown]
  - Red blood cell abnormality [Unknown]
  - Fatigue [Unknown]
  - Constipation [Unknown]
  - Nausea [Unknown]
